FAERS Safety Report 10501633 (Version 1)
Quarter: 2014Q4

REPORT INFORMATION
  Report Type: Report from Study
  Country: US (occurrence: US)
  Receive Date: 20141007
  Receipt Date: 20141007
  Transmission Date: 20150528
  Serious: No
  Sender: FDA-Public Use
  Company Number: US-009507513-1409USA013426

PATIENT
  Age: 27 Year
  Weight: 95.69 kg

DRUGS (1)
  1. IMPLANON [Suspect]
     Active Substance: ETONOGESTREL
     Dosage: UNK
     Route: 059
     Dates: start: 20121029, end: 20140924

REACTIONS (2)
  - Haemorrhage [Unknown]
  - Medical device removal [Unknown]

NARRATIVE: CASE EVENT DATE: 20140924
